FAERS Safety Report 5609198-0 (Version None)
Quarter: 2008Q1

REPORT INFORMATION
  Report Type: 
  Country: None (occurrence: None)
  Receive Date: 20080131
  Receipt Date: 20080125
  Transmission Date: 20080703
  Serious: Yes (Other)
  Sender: FDA-Public Use
  Company Number: JP-AVENTIS-200810081JP

PATIENT

DRUGS (2)
  1. LASIX [Suspect]
     Route: 048
  2. UNKNOWN DRUG [Concomitant]

REACTIONS (1)
  - ERYTHEMA MULTIFORME [None]
